FAERS Safety Report 7133237-1 (Version None)
Quarter: 2010Q4

REPORT INFORMATION
  Report Type: 
  Country: None (occurrence: None)
  Receive Date: 20101117
  Receipt Date: 20101102
  Transmission Date: 20110411
  Serious: Yes (Hospitalization)
  Sender: FDA-Public Use
  Company Number: AUR-APL-2010-02719

PATIENT
  Age: 79 Year
  Sex: Female

DRUGS (1)
  1. ALENDRONIC ACID [Suspect]
     Indication: PRODUCT USED FOR UNKNOWN INDICATION

REACTIONS (7)
  - CHEMICAL INJURY [None]
  - CONTRAINDICATION TO MEDICAL TREATMENT [None]
  - DEHYDRATION [None]
  - DYSPHAGIA [None]
  - ODYNOPHAGIA [None]
  - PHARYNGOESOPHAGEAL DIVERTICULUM [None]
  - WEIGHT DECREASED [None]
